FAERS Safety Report 7887778-X (Version None)
Quarter: 2011Q4

REPORT INFORMATION
  Report Type: 
  Country: None (occurrence: None)
  Receive Date: 20111103
  Receipt Date: 20111027
  Transmission Date: 20120403
  Serious: Yes (Other)
  Sender: FDA-Public Use
  Company Number: US-AMGEN-USASP2011056092

PATIENT
  Sex: Female
  Weight: 100.5 kg

DRUGS (12)
  1. ACTOS [Concomitant]
     Dosage: 30 MG, UNK
  2. IMMUNE GLOBULIN NOS [Concomitant]
     Indication: IDIOPATHIC THROMBOCYTOPENIC PURPURA
  3. PLATELETS [Concomitant]
  4. FLUVAX [Concomitant]
     Dosage: UNK
     Dates: start: 20110811, end: 20110811
  5. ZOCOR [Concomitant]
     Dosage: 20 MG, UNK
  6. POTASSIUM [Concomitant]
     Dosage: 99 MG, UNK
  7. GLIPIZIDE [Concomitant]
     Dosage: 10 MG, UNK
  8. BUMETANIDE [Concomitant]
     Dosage: 2 MG, UNK
  9. BYSTOLIC [Concomitant]
     Dosage: 10 MG, UNK
  10. PNEUMOVAX 23 [Concomitant]
     Dosage: UNK
     Dates: start: 20110811, end: 20110811
  11. MENINGOCOCCAL VACCINE [Concomitant]
     Dosage: UNK
     Dates: start: 20110811, end: 20110811
  12. NPLATE [Suspect]
     Indication: IDIOPATHIC THROMBOCYTOPENIC PURPURA
     Dosage: 214 MUG, QWK
     Dates: start: 20110616, end: 20110915

REACTIONS (7)
  - NECK MASS [None]
  - INSOMNIA [None]
  - THERAPEUTIC RESPONSE DECREASED [None]
  - THROMBOCYTOSIS [None]
  - WHITE BLOOD CELL COUNT INCREASED [None]
  - TENDONITIS [None]
  - OEDEMA PERIPHERAL [None]
